FAERS Safety Report 9363477 (Version 3)
Quarter: 2014Q3

REPORT INFORMATION
  Report Type: Spontaneous
  Country: US (occurrence: US)
  Receive Date: 20130624
  Receipt Date: 20140815
  Transmission Date: 20150326
  Serious: Yes (Other)
  Sender: FDA-Public Use
  Company Number: US-BAYER-2013-076814

PATIENT
  Age: 31 Year
  Sex: Female

DRUGS (4)
  1. PROVENTIL HFA [Concomitant]
     Active Substance: ALBUTEROL SULFATE
  2. MIRENA [Suspect]
     Active Substance: LEVONORGESTREL
     Indication: CONTRACEPTION
     Dosage: 20 MCG/24HR, CONT
     Route: 015
     Dates: start: 20110725
  3. ACCOMIN CENTRUM ORAL [Concomitant]
  4. RHINOCORT [Concomitant]
     Active Substance: BUDESONIDE

REACTIONS (7)
  - Pyrexia [None]
  - Abortion spontaneous [None]
  - Drug ineffective [None]
  - Haemorrhage in pregnancy [None]
  - Pelvic pain [None]
  - Embedded device [None]
  - Pregnancy with contraceptive device [None]

NARRATIVE: CASE EVENT DATE: 20130214
